FAERS Safety Report 5129711-X (Version None)
Quarter: 2006Q4

REPORT INFORMATION
  Report Type: 
  Country: None (occurrence: None)
  Receive Date: 20061018
  Receipt Date: 20060913
  Transmission Date: 20070319
  Serious: Yes (Other)
  Sender: FDA-Public Use
  Company Number: DE-GLAXOSMITHKLINE-D0050882A

PATIENT
  Age: 66 Year
  Sex: Female

DRUGS (3)
  1. AVANDAMET [Suspect]
     Indication: DIABETES MELLITUS NON-INSULIN-DEPENDENT
     Route: 065
     Dates: start: 20060601, end: 20060901
  2. METFORMIN HCL [Concomitant]
     Dosage: 1000MG TWICE PER DAY
     Route: 065
  3. PROTHYRID [Concomitant]
     Dosage: 1TAB SINGLE DOSE

REACTIONS (4)
  - ANGIONEUROTIC OEDEMA [None]
  - PRURITUS [None]
  - RASH [None]
  - SWELLING FACE [None]
